FAERS Safety Report 9475481 (Version 3)
Quarter: 2014Q1

REPORT INFORMATION
  Report Type: Spontaneous
  Country: NL (occurrence: NL)
  Receive Date: 20130826
  Receipt Date: 20140304
  Transmission Date: 20141002
  Serious: Yes (Other)
  Sender: FDA-Public Use
  Company Number: NL-009507513-1303NLD006315

PATIENT
  Age: 36 Year
  Sex: Female
  Weight: 75 kg

DRUGS (1)
  1. NUVARING [Suspect]
     Dosage: 1 UNK, UNK
     Route: 067
     Dates: start: 200612

REACTIONS (3)
  - Smear cervix abnormal [Recovered/Resolved]
  - Mucosal inflammation [Recovered/Resolved]
  - Incorrect drug administration duration [Unknown]
